FAERS Safety Report 8852117 (Version 1)
Quarter: 2012Q4

REPORT INFORMATION
  Report Type: 
  Country: JP (occurrence: JP)
  Receive Date: 20121022
  Receipt Date: 20121022
  Transmission Date: 20130627
  Serious: Yes (Hospitalization)
  Sender: FDA-Public Use
  Company Number: JP-EISAI INC-E7389-03130-SPO-JP

PATIENT
  Age: 45 Year
  Sex: Female

DRUGS (13)
  1. HALAVEN [Suspect]
     Indication: BREAST CANCER RECURRENT
     Route: 041
     Dates: start: 20120906, end: 20120906
  2. HALAVEN [Suspect]
     Dates: start: 20120927, end: 20120927
  3. HALAVEN [Suspect]
     Dates: start: 20120816, end: 20120816
  4. OXYCONTIN [Concomitant]
     Route: 048
  5. LASIX [Concomitant]
     Route: 048
  6. ALDACTONE [Concomitant]
     Route: 048
  7. MAGMITT [Concomitant]
     Route: 048
  8. LAXOBERON [Concomitant]
     Route: 048
  9. MUCOSTA [Concomitant]
     Route: 048
  10. LOXONIN [Concomitant]
     Route: 048
  11. GASMOTIN [Concomitant]
     Route: 048
  12. NEXIUM [Concomitant]
     Route: 048
  13. MYONAL [Concomitant]
     Route: 048

REACTIONS (4)
  - Anaemia [Recovered/Resolved]
  - Ascites [Not Recovered/Not Resolved]
  - Oedema peripheral [Not Recovered/Not Resolved]
  - Melaena [Unknown]
